FAERS Safety Report 10983064 (Version 1)
Quarter: 2015Q2

REPORT INFORMATION
  Report Type: Spontaneous
  Country: US (occurrence: None)
  Receive Date: 20150402
  Receipt Date: 20150402
  Transmission Date: 20150821
  Serious: Yes (Other)
  Sender: FDA-Public Use
  Company Number: None

PATIENT
  Age: 33 Year
  Sex: Female
  Weight: 46.27 kg

DRUGS (3)
  1. PRIMROSE EXTRACT. [Concomitant]
     Active Substance: PRIMROSE EXTRACT
  2. ZYRTEC [Concomitant]
     Active Substance: CETIRIZINE HYDROCHLORIDE
  3. METRONIDAZOLE. [Suspect]
     Active Substance: METRONIDAZOLE
     Indication: VAGINITIS BACTERIAL
     Route: 048
     Dates: start: 20150329, end: 20150331

REACTIONS (4)
  - Dyspnoea [None]
  - Chills [None]
  - Balance disorder [None]
  - Paraesthesia [None]

NARRATIVE: CASE EVENT DATE: 20150330
